FAERS Safety Report 24190523 (Version 1)
Quarter: 2024Q3

REPORT INFORMATION
  Report Type: Spontaneous
  Country: NL (occurrence: NL)
  Receive Date: 20240808
  Receipt Date: 20240808
  Transmission Date: 20241016
  Serious: Yes (Other)
  Sender: TEVA
  Company Number: None

PATIENT
  Age: 30 Year
  Sex: Female

DRUGS (1)
  1. ETHINYL ESTRADIOL\LEVONORGESTREL [Suspect]
     Active Substance: ETHINYL ESTRADIOL\LEVONORGESTREL
     Indication: Contraception
     Dosage: 1 PIECE 1 X PER DAY;ETHINYLESTRADIOL/LEVONORGESTREL 30/150UG / BRAND NAME NOT SPECIFIED
     Route: 065
     Dates: start: 20230601

REACTIONS (1)
  - Hypophosphataemia [Recovered/Resolved]
